FAERS Safety Report 13944422 (Version 1)
Quarter: 2017Q3

REPORT INFORMATION
  Report Type: Spontaneous
  Country: US (occurrence: US)
  Receive Date: 20170907
  Receipt Date: 20170907
  Transmission Date: 20171128
  Serious: No
  Sender: FDA-Public Use
  Company Number: US-ROCHE-1280151

PATIENT
  Sex: Male

DRUGS (1)
  1. RITUXAN [Suspect]
     Active Substance: RITUXIMAB
     Indication: NON-HODGKIN^S LYMPHOMA
     Dosage: WEEKLY
     Route: 042
     Dates: start: 201103

REACTIONS (7)
  - Disease progression [Unknown]
  - Bone disorder [Unknown]
  - Lymphadenopathy [Unknown]
  - Dysphagia [Unknown]
  - Recurrent cancer [Unknown]
  - Lymphoma transformation [Not Recovered/Not Resolved]
  - Lymph node palpable [Unknown]
